FAERS Safety Report 22400385 (Version 6)
Quarter: 2025Q2

REPORT INFORMATION
  Report Type: Spontaneous
  Country: US (occurrence: US)
  Receive Date: 20230602
  Receipt Date: 20250529
  Transmission Date: 20250716
  Serious: Yes (Other)
  Sender: PFIZER
  Company Number: US-PFIZER INC-PV202300097621

PATIENT
  Age: 71 Year
  Sex: Female

DRUGS (1)
  1. EXEMESTANE [Suspect]
     Active Substance: EXEMESTANE

REACTIONS (5)
  - Angioedema [Unknown]
  - Orbital oedema [Unknown]
  - Pharyngeal swelling [Unknown]
  - Cough [Unknown]
  - Drug hypersensitivity [Unknown]
